FAERS Safety Report 4377498-0 (Version None)
Quarter: 2004Q2

REPORT INFORMATION
  Report Type: 
  Country: None (occurrence: None)
  Receive Date: 20040602
  Receipt Date: 20031001
  Transmission Date: 20050107
  Serious: Yes (Death)
  Sender: FDA-Public Use
  Company Number: NSADSS2001023994

PATIENT
  Age: 68 Year
  Sex: Female
  Weight: 124.7392 kg

DRUGS (10)
  1. PROPULSID [Suspect]
     Indication: GASTROOESOPHAGEAL REFLUX DISEASE
     Dosage: 10 MG, 4 IN 1 DAY, ORAL
     Route: 048
     Dates: start: 19980814, end: 19980817
  2. HYDROCODONE (HYDROCODONE) [Concomitant]
  3. ALLOPURINOL [Concomitant]
  4. SYNTHROID [Concomitant]
  5. FUROSEMIDE [Concomitant]
  6. ZAROXOLYN [Concomitant]
  7. ZESTRIL [Concomitant]
  8. KLOR-CON [Concomitant]
  9. GLUCOPHAGE [Concomitant]
  10. DIPHENOXYLATE (DIPHENOXYLATE) [Concomitant]

REACTIONS (1)
  - CARDIO-RESPIRATORY ARREST [None]
